FAERS Safety Report 17913117 (Version 1)
Quarter: 2020Q2

REPORT INFORMATION
  Report Type: Report from Study
  Country: US (occurrence: US)
  Receive Date: 20200618
  Receipt Date: 20200618
  Transmission Date: 20200714
  Serious: Yes (Death)
  Sender: FDA-Public Use
  Company Number: US-PFIZER INC-2020236336

PATIENT

DRUGS (5)
  1. CARMUSTINE. [Suspect]
     Active Substance: CARMUSTINE
     Indication: NON-HODGKIN^S LYMPHOMA
     Dosage: 100 MG/M2, CYCLIC (DAY 1)
     Route: 042
  2. CISPLATIN. [Suspect]
     Active Substance: CISPLATIN
     Indication: NON-HODGKIN^S LYMPHOMA
     Dosage: 15 MG/M2, CYCLIC (DAILY DAYS: 1-5 (1-HOUR INFUSION))
     Route: 042
  3. DEXAMETHASONE SODIUM PHOSPHATE. [Suspect]
     Active Substance: DEXAMETHASONE SODIUM PHOSPHATE
     Indication: NON-HODGKIN^S LYMPHOMA
     Dosage: 80 MG/M2, CYCLIC (DAILY, DAYS 1-5, FOUR DIVIDED DOSES EACH DAY)
     Route: 048
  4. BLEOMYCIN SULFATE [Suspect]
     Active Substance: BLEOMYCIN SULFATE
     Indication: NON-HODGKIN^S LYMPHOMA
     Dosage: 2 MG, CYCLIC(DAILY, AT DAYS 1-5, 8-12, 15-19, ROUTE: SQ OR IM, TOTAL CUMULATIVE DOSE 180 MG)
  5. TENIPOSIDE. [Suspect]
     Active Substance: TENIPOSIDE
     Indication: NON-HODGKIN^S LYMPHOMA
     Dosage: 15 MG/M2, CYCLIC (DAILY, DAYS: 1, 3, 5, 8, 10)
     Route: 042

REACTIONS (1)
  - Respiratory failure [Fatal]
